FAERS Safety Report 4742806-5 (Version None)
Quarter: 2005Q3

REPORT INFORMATION
  Report Type: 
  Country: None (occurrence: None)
  Receive Date: 20050811
  Receipt Date: 20050707
  Transmission Date: 20060218
  Serious: Yes (Death)
  Sender: FDA-Public Use
  Company Number: DEPFP-S-20050018

PATIENT
  Age: 53 Year
  Sex: Female

DRUGS (9)
  1. NAVELBINE [Suspect]
     Route: 042
     Dates: start: 20050606, end: 20050627
  2. DEXAMETHASONE [Concomitant]
     Dates: start: 20050627, end: 20050627
  3. KEVATRIL [Concomitant]
     Dates: start: 20050627, end: 20050627
  4. CARVEDILOL [Concomitant]
  5. CAPTOPRIL [Concomitant]
  6. DIGIMERCK [Concomitant]
  7. FUROSEMIDE [Concomitant]
  8. SPIRONOLACTONE [Concomitant]
  9. MISTLETOE [Concomitant]

REACTIONS (11)
  - ABDOMINAL DISTENSION [None]
  - BACK PAIN [None]
  - CHEST DISCOMFORT [None]
  - CIRCULATORY COLLAPSE [None]
  - DEATH [None]
  - DISCOMFORT [None]
  - DYSPNOEA [None]
  - HAEMOGLOBIN DECREASED [None]
  - LEUKOPENIA [None]
  - PULSE ABSENT [None]
  - RESTLESSNESS [None]
